FAERS Safety Report 17529121 (Version 2)
Quarter: 2020Q2

REPORT INFORMATION
  Report Type: Spontaneous
  Country: FR (occurrence: FR)
  Receive Date: 20200311
  Receipt Date: 20200415
  Transmission Date: 20200713
  Serious: Yes (Disabling)
  Sender: FDA-Public Use
  Company Number: FR-MYLANLABS-2020M1026329

PATIENT
  Age: 11 Year
  Sex: Male
  Weight: 170 kg

DRUGS (5)
  1. HYDROCORTISONE. [Suspect]
     Active Substance: HYDROCORTISONE
     Dosage: UNK
  2. HYDROCORTISONE. [Suspect]
     Active Substance: HYDROCORTISONE
     Indication: ECZEMA
     Dosage: UNK
  3. PROTOPIC [Suspect]
     Active Substance: TACROLIMUS
     Dosage: UNK
     Dates: start: 2013
  4. HYDROCORTANCYL                     /00016204/ [Suspect]
     Active Substance: PREDNISOLONE ACETATE
     Indication: ECZEMA
     Dosage: UNK
  5. PROTOPIC [Suspect]
     Active Substance: TACROLIMUS
     Indication: ECZEMA
     Dosage: UNK
     Dates: start: 2011

REACTIONS (6)
  - Immune system disorder [Unknown]
  - Endocrine disorder [Unknown]
  - Asthma [Unknown]
  - Dysaesthesia [Unknown]
  - Wheelchair user [Recovered/Resolved]
  - Hyperaesthesia [Unknown]

NARRATIVE: CASE EVENT DATE: 2011
